FAERS Safety Report 8442707-5 (Version None)
Quarter: 2012Q2

REPORT INFORMATION
  Report Type: 
  Country: None (occurrence: None)
  Receive Date: 20120615
  Receipt Date: 20120604
  Transmission Date: 20120825
  Serious: No
  Sender: FDA-Public Use
  Company Number: US-ASTRAZENECA-2012SE37492

PATIENT
  Age: 85 Year
  Sex: Female

DRUGS (4)
  1. COUMADIN [Concomitant]
  2. SYNTHROID [Concomitant]
  3. TOPROL-XL [Suspect]
     Route: 048
  4. TAZTEA [Concomitant]

REACTIONS (2)
  - HYPERTENSION [None]
  - DRUG DOSE OMISSION [None]
